FAERS Safety Report 18041945 (Version 1)
Quarter: 2020Q3

REPORT INFORMATION
  Report Type: Spontaneous
  Country: JP (occurrence: JP)
  Receive Date: 20200720
  Receipt Date: 20200720
  Transmission Date: 20201103
  Serious: Yes (Death, Hospitalization, Other)
  Sender: FDA-Public Use
  Company Number: JP-ACTELION-A-CH2020-207308

PATIENT
  Age: 75 Year
  Sex: Female

DRUGS (3)
  1. SILDENAFIL. [Concomitant]
     Active Substance: SILDENAFIL
     Dosage: 60 MG, QD
  2. TRACLEER [Suspect]
     Active Substance: BOSENTAN
     Indication: SCLERODERMA ASSOCIATED DIGITAL ULCER
     Route: 048
  3. TRACLEER [Suspect]
     Active Substance: BOSENTAN
     Indication: PULMONARY ARTERIAL HYPERTENSION

REACTIONS (17)
  - Condition aggravated [Unknown]
  - Peripheral artery stenosis [Unknown]
  - Pain [Unknown]
  - Multiple organ dysfunction syndrome [Fatal]
  - Sepsis [Fatal]
  - Amputation stump pain [Unknown]
  - Gangrene [Unknown]
  - Leg amputation [Unknown]
  - Peripheral ischaemia [Unknown]
  - Vasodilation procedure [Unknown]
  - Finger amputation [Unknown]
  - Postoperative wound infection [Unknown]
  - Skin ulcer [Unknown]
  - C-reactive protein increased [Unknown]
  - Morphoea [Unknown]
  - Cardiac failure congestive [Unknown]
  - Peripheral artery occlusion [Unknown]

NARRATIVE: CASE EVENT DATE: 2016
